FAERS Safety Report 25244914 (Version 3)
Quarter: 2025Q2

REPORT INFORMATION
  Report Type: Spontaneous
  Country: IE (occurrence: IE)
  Receive Date: 20250428
  Receipt Date: 20250619
  Transmission Date: 20250716
  Serious: Yes (Death, Hospitalization, Other)
  Sender: BAYER HEALTHCARE PHARMACEUTICALS INC.
  Company Number: IE-BAYER-2025A051553

PATIENT
  Age: 36 Year
  Sex: Female

DRUGS (2)
  1. MIRENA [Suspect]
     Active Substance: LEVONORGESTREL
     Indication: Heavy menstrual bleeding
     Dosage: 20?G/DAY
     Route: 015
     Dates: start: 20211021, end: 20221224
  2. ASPIRIN [Concomitant]
     Active Substance: ASPIRIN
     Indication: Renal failure
     Dates: start: 20180218, end: 20221224

REACTIONS (22)
  - Cardiac arrest [Fatal]
  - Brain injury [Fatal]
  - Dyspnoea [Fatal]
  - Uterine perforation [Fatal]
  - Septic shock [None]
  - Sepsis [None]
  - Kidney infection [None]
  - Urinary bladder haemorrhage [None]
  - Urinary tract infection [None]
  - Paraplegia [None]
  - Rash [None]
  - Genital haemorrhage [None]
  - Night sweats [None]
  - Flank pain [None]
  - Pyrexia [None]
  - Weight decreased [None]
  - Urticaria [None]
  - Headache [None]
  - General physical health deterioration [None]
  - Hypertension [None]
  - Pyuria [None]
  - Vaginal infection [None]

NARRATIVE: CASE EVENT DATE: 20220130
